FAERS Safety Report 6592964-5 (Version None)
Quarter: 2010Q1

REPORT INFORMATION
  Report Type: 
  Country: None (occurrence: None)
  Receive Date: 20100212
  Receipt Date: 20100201
  Transmission Date: 20100710
  Serious: Yes (Other)
  Sender: FDA-Public Use
  Company Number: 2010SP006525

PATIENT
  Age: 48 Year
  Sex: Male
  Weight: 79 kg

DRUGS (3)
  1. MIRTAZAPINE [Suspect]
     Indication: SLEEP DISORDER
     Dosage: 15 MG' QD' PO
     Route: 048
     Dates: start: 20091216
  2. TESTOSTERONE [Concomitant]
  3. ZOLPIDEM [Concomitant]

REACTIONS (13)
  - DIZZINESS [None]
  - DYSARTHRIA [None]
  - EYELID DISORDER [None]
  - FATIGUE [None]
  - FEELING ABNORMAL [None]
  - HEART RATE DECREASED [None]
  - HYPERHIDROSIS [None]
  - LIMB DISCOMFORT [None]
  - LOSS OF CONSCIOUSNESS [None]
  - SOMNOLENCE [None]
  - SPEECH DISORDER [None]
  - TUNNEL VISION [None]
  - VISUAL IMPAIRMENT [None]
